FAERS Safety Report 12218087 (Version 1)
Quarter: 2016Q1

REPORT INFORMATION
  Report Type: Report from Study
  Country: JP (occurrence: JP)
  Receive Date: 20160329
  Receipt Date: 20160329
  Transmission Date: 20160526
  Serious: Yes (Hospitalization, Other)
  Sender: FDA-Public Use
  Company Number: PHHO2004JP09792

PATIENT
  Age: 72 Year
  Sex: Male
  Weight: 68 kg

DRUGS (19)
  1. MEIACT [Concomitant]
     Active Substance: CEFDITOREN PIVOXIL
     Indication: PRODUCT USED FOR UNKNOWN INDICATION
     Dosage: UNK
     Route: 048
     Dates: start: 20040113, end: 20040115
  2. BAYASPIRIN [Concomitant]
     Active Substance: ASPIRIN
     Dosage: 100 MG, UNK
     Route: 048
     Dates: start: 20050610
  3. SAWACILLIN [Concomitant]
     Active Substance: AMOXICILLIN
     Indication: GINGIVITIS
     Dosage: 750 MG, UNK
     Route: 048
     Dates: start: 20060323, end: 20060326
  4. FLOMOX//CEFCAPENE PIVOXIL HYDROCHLORIDE [Concomitant]
     Active Substance: CEFCAPENE PIVOXIL HYDROCHLORIDE HYDRATE
     Indication: GINGIVITIS
     Dosage: 200 MG, UNK
     Route: 048
     Dates: start: 20060317, end: 20060319
  5. PERYCIT [Concomitant]
     Indication: HYPERLIPIDAEMIA
     Dosage: UNK
     Route: 048
  6. LOXONIN [Concomitant]
     Active Substance: LOXOPROFEN SODIUM
     Indication: GINGIVITIS
     Dosage: UNK
     Route: 048
     Dates: start: 20060317, end: 20060327
  7. POTACOL-R [Concomitant]
     Indication: ELECTROLYTE SUBSTITUTION THERAPY
     Dosage: 500 ML, UNK
     Route: 041
     Dates: start: 20060328, end: 20060328
  8. BLOPRESS [Concomitant]
     Active Substance: CANDESARTAN CILEXETIL
     Indication: HYPERTENSION
     Dosage: 4 MG, UNK
     Route: 048
  9. SIGMART [Concomitant]
     Active Substance: NICORANDIL
     Indication: HYPERTENSION
     Dosage: 15 MG, UNK
     Route: 048
  10. HERBESSER [Concomitant]
     Active Substance: DILTIAZEM HYDROCHLORIDE
     Indication: HYPERTENSION
     Dosage: 200 MG, UNK
     Route: 048
  11. SAWACILLIN [Concomitant]
     Active Substance: AMOXICILLIN
     Dosage: 1000 MG, UNK
     Route: 048
     Dates: start: 20060331, end: 20060406
  12. STI571 [Suspect]
     Active Substance: IMATINIB MESYLATE
     Indication: CHRONIC MYELOID LEUKAEMIA
     Dosage: 400 MG, QD
     Route: 048
     Dates: start: 20040113, end: 20060208
  13. STI571 [Suspect]
     Active Substance: IMATINIB MESYLATE
     Dosage: 400 MG, QD
     Route: 048
     Dates: start: 20060211, end: 20060411
  14. EPL [Concomitant]
     Active Substance: LECITHIN
     Indication: HYPERLIPIDAEMIA
     Dosage: 750 MG, UNK
     Route: 048
  15. RISUMIC [Concomitant]
     Active Substance: AMEZINIUM METILSULFATE
     Indication: ORTHOSTATIC HYPOTENSION
     Dosage: 20 MG, UNK
     Route: 065
  16. STI571 [Suspect]
     Active Substance: IMATINIB MESYLATE
     Dosage: 400 MG, QD
     Route: 048
     Dates: start: 20060420
  17. BAYASPIRIN [Concomitant]
     Active Substance: ASPIRIN
     Indication: ANGINA PECTORIS
     Dosage: 200 MG, UNK
     Route: 048
     Dates: end: 20050427
  18. MUCOSTA [Concomitant]
     Active Substance: REBAMIPIDE
     Indication: PROPHYLAXIS AGAINST GASTROINTESTINAL ULCER
     Dosage: 300 MG, UNK
     Route: 048
  19. TRIFLUID [Concomitant]
     Active Substance: CALCIUM CHLORIDE\DEXTROSE\ELECTROLYTES NOS\FRUCTOSE\XYLITOL\ZINC SULFATE
     Indication: ELECTROLYTE SUBSTITUTION THERAPY
     Dosage: 500 ML, UNK
     Route: 065
     Dates: start: 20060329, end: 20060404

REACTIONS (31)
  - Blood creatinine increased [Not Recovered/Not Resolved]
  - Upper respiratory tract inflammation [Recovered/Resolved]
  - Diarrhoea [Recovered/Resolved]
  - Eczema [Recovered/Resolved]
  - Ventricular extrasystoles [Not Recovered/Not Resolved]
  - Cataract [Not Recovered/Not Resolved]
  - Gastric antral vascular ectasia [Unknown]
  - Gastric mucosal lesion [Unknown]
  - Aortic aneurysm [Not Recovered/Not Resolved]
  - Hyperuricaemia [Recovered/Resolved]
  - Eczema [Recovered/Resolved]
  - Proctalgia [Not Recovered/Not Resolved]
  - Oedema peripheral [Not Recovered/Not Resolved]
  - Nipple pain [Recovered/Resolved]
  - Metabolic acidosis [Not Recovered/Not Resolved]
  - Glossodynia [Recovered/Resolved]
  - Anaemia [Unknown]
  - Pain in extremity [Recovered/Resolved]
  - Face oedema [Not Recovered/Not Resolved]
  - Vomiting [Recovered/Resolved]
  - Oedema peripheral [Recovered/Resolved]
  - Spinal osteoarthritis [Not Recovered/Not Resolved]
  - Vomiting [Recovered/Resolved]
  - Gastric haemorrhage [Recovered/Resolved]
  - Iron deficiency anaemia [Unknown]
  - Skin erosion [Recovered/Resolved]
  - Diarrhoea [Not Recovered/Not Resolved]
  - Herpes zoster [Recovered/Resolved]
  - Muscular weakness [Recovered/Resolved]
  - Weight increased [Recovered/Resolved]
  - Helicobacter infection [Recovered/Resolved]

NARRATIVE: CASE EVENT DATE: 20040114
